FAERS Safety Report 8986737 (Version 1)
Quarter: 2012Q4

REPORT INFORMATION
  Report Type: 
  Country: US (occurrence: US)
  Receive Date: 20121227
  Receipt Date: 20121227
  Transmission Date: 20130627
  Serious: No
  Sender: FDA-Public Use
  Company Number: US-JNJFOC-20121210980

PATIENT
  Sex: Male

DRUGS (2)
  1. SANDOZ FENTANYL MATRIX TRANSDERM SYSTEM [Suspect]
     Indication: CANCER PAIN
     Route: 062
     Dates: start: 20121208
  2. WATSON FENTANYL TRANSDERMAL SYSTEM [Suspect]
     Indication: CANCER PAIN
     Route: 062
     Dates: start: 201212

REACTIONS (1)
  - Incorrect drug administration duration [Not Recovered/Not Resolved]
